FAERS Safety Report 17227673 (Version 5)
Quarter: 2025Q2

REPORT INFORMATION
  Report Type: Spontaneous
  Country: PT (occurrence: PT)
  Receive Date: 20200103
  Receipt Date: 20250531
  Transmission Date: 20250717
  Serious: Yes (Other)
  Sender: AUROBINDO
  Company Number: PT-RECKITT BENCKISER HEALTHCARE INT LIMITED-RB-93442-2019

PATIENT
  Age: 20 Year
  Sex: Male

DRUGS (4)
  1. IBUPROFEN [Suspect]
     Active Substance: IBUPROFEN
     Indication: Product used for unknown indication
     Route: 065
  2. BUDESONIDE\FORMOTEROL [Concomitant]
     Active Substance: BUDESONIDE\FORMOTEROL
     Indication: Product used for unknown indication
     Route: 065
  3. EPINEPHRINE [Concomitant]
     Active Substance: EPINEPHRINE
     Indication: Product used for unknown indication
     Route: 065
  4. AMIODARONE [Concomitant]
     Active Substance: AMIODARONE
     Indication: Atrial fibrillation
     Route: 065

REACTIONS (18)
  - Nasal obstruction [Recovering/Resolving]
  - Anosmia [Not Recovered/Not Resolved]
  - Taste disorder [Not Recovered/Not Resolved]
  - Asthma [Unknown]
  - Nasal polyps [Unknown]
  - Drug intolerance [Unknown]
  - Nasal turbinate hypertrophy [Unknown]
  - Condition aggravated [Unknown]
  - Anaphylactic reaction [Unknown]
  - Erythema [Unknown]
  - Periorbital oedema [Unknown]
  - Dyspnoea [Unknown]
  - Diarrhoea [Unknown]
  - Cough [Unknown]
  - Oedema peripheral [Unknown]
  - Lip oedema [Unknown]
  - Pruritus [Unknown]
  - NSAID exacerbated respiratory disease [Unknown]
